FAERS Safety Report 10216064 (Version 1)
Quarter: 2014Q2

REPORT INFORMATION
  Report Type: Spontaneous
  Country: US (occurrence: US)
  Receive Date: 20140604
  Receipt Date: 20140604
  Transmission Date: 20141212
  Serious: Yes (Hospitalization, Other)
  Sender: FDA-Public Use
  Company Number: US-ASTRAZENECA-2014SE36562

PATIENT
  Age: 56 Year
  Sex: Female

DRUGS (9)
  1. QUETIAPINE [Suspect]
     Indication: DEPRESSION
     Route: 048
  2. LEVETIRACETAM [Interacting]
     Indication: CONVULSION
     Route: 048
  3. CEFTRIAXONE [Concomitant]
     Indication: STREPTOCOCCAL INFECTION
     Dosage: 2 GM IV EVERY 12 HOURS FOR 7 DAYS
     Route: 042
  4. FLUTICASONE [Concomitant]
  5. CARVEDILOL [Concomitant]
  6. PRAVASTATIN [Concomitant]
  7. LORAZEPAM [Concomitant]
  8. METFORMIN [Concomitant]
  9. DULOXETINE [Concomitant]

REACTIONS (2)
  - Drug interaction [Unknown]
  - Febrile neutropenia [Recovered/Resolved]
